FAERS Safety Report 23451650 (Version 3)
Quarter: 2025Q1

REPORT INFORMATION
  Report Type: Spontaneous
  Country: US (occurrence: US)
  Receive Date: 20240129
  Receipt Date: 20250103
  Transmission Date: 20250409
  Serious: No
  Sender: SANOFI AVENTIS
  Company Number: US-SA-SAC20240119000154

PATIENT
  Age: 6 Year
  Sex: Male
  Weight: 24 kg

DRUGS (1)
  1. DUPIXENT [Suspect]
     Active Substance: DUPILUMAB
     Indication: Dermatitis allergic
     Dosage: 300 MG, Q4W
     Route: 058

REACTIONS (8)
  - Dermatitis allergic [Unknown]
  - Condition aggravated [Unknown]
  - Dry mouth [Unknown]
  - Pollakiuria [Unknown]
  - Injection site swelling [Unknown]
  - Injection site erythema [Unknown]
  - Therapeutic response shortened [Unknown]
  - Off label use [Unknown]
